FAERS Safety Report 4960141-7 (Version None)
Quarter: 2006Q1

REPORT INFORMATION
  Report Type: 
  Country: None (occurrence: None)
  Receive Date: 20060328
  Receipt Date: 20051018
  Transmission Date: 20060701
  Serious: Yes (Hospitalization, Other)
  Sender: FDA-Public Use
  Company Number: 2006017124

PATIENT
  Age: 47 Year
  Sex: Female

DRUGS (1)
  1. BEXTRA [Suspect]
     Indication: NECK PAIN
     Dosage: 20 MG (20 MG, 1 IN 1 D), UNKNOWN
     Dates: start: 20030403

REACTIONS (15)
  - BACK PAIN [None]
  - DISCOMFORT [None]
  - ECZEMA [None]
  - FEELING ABNORMAL [None]
  - HYPOAESTHESIA [None]
  - INCISION SITE COMPLICATION [None]
  - INTERVERTEBRAL DISC PROTRUSION [None]
  - NO THERAPEUTIC RESPONSE [None]
  - PAIN [None]
  - PAIN IN EXTREMITY [None]
  - POST PROCEDURAL COMPLICATION [None]
  - PSORIASIS [None]
  - RASH PRURITIC [None]
  - SEBORRHOEIC KERATOSIS [None]
  - SKIN INFECTION [None]
